FAERS Safety Report 11105624 (Version 1)
Quarter: 2015Q2

REPORT INFORMATION
  Report Type: Spontaneous
  Country: US (occurrence: None)
  Receive Date: 20150508
  Receipt Date: 20150508
  Transmission Date: 20150821
  Serious: Yes (Life-Threatening, Hospitalization, Disabling, Other)
  Sender: FDA-Public Use
  Company Number: None

PATIENT
  Age: 35 Year
  Sex: Female
  Weight: 52.16 kg

DRUGS (42)
  1. CIPROFLOXACIN. [Suspect]
     Active Substance: CIPROFLOXACIN
     Indication: EAR INFECTION
     Dosage: 1
     Route: 048
     Dates: start: 20140422, end: 20140505
  2. GABAPENTEN [Concomitant]
  3. B-CELL [Concomitant]
  4. LITHIUM ORITATE [Concomitant]
  5. RNA VIRAL DIGESTIVE ENZYMES [Concomitant]
  6. OXYGEN MACHIN [Concomitant]
  7. COLOSTRUM LIVER SUPPORT [Concomitant]
  8. RNA SURVICAL [Concomitant]
  9. VALIUM [Concomitant]
     Active Substance: DIAZEPAM
  10. ALL IN ONE MULIT VITAMIN [Concomitant]
  11. PRO GHA HYURALONIC ACID [Concomitant]
  12. RNA LEAKY GUT [Concomitant]
  13. RNA IMMUNE ASSIST [Concomitant]
  14. PERCOCET [Concomitant]
     Active Substance: ACETAMINOPHEN\OXYCODONE HYDROCHLORIDE
  15. MTHFR METHYLMATE [Concomitant]
  16. ADENOSYL B [Concomitant]
  17. XOQ10 [Concomitant]
  18. INFRARED HEAT SHOULDER BRACE [Concomitant]
  19. LYPOSMOAL [Concomitant]
  20. IMMUNO FACTORS M, 2, AND 6 [Concomitant]
  21. FOKVDK SUPPORT [Concomitant]
  22. 5HTP GABA [Concomitant]
  23. NATUROMYCIN [Concomitant]
  24. CRANBERY [Concomitant]
  25. ZOLOFT [Concomitant]
     Active Substance: SERTRALINE HYDROCHLORIDE
  26. HYPERBERIC CHAMBER [Concomitant]
  27. VITAMIN C [Concomitant]
     Active Substance: ASCORBIC ACID
  28. HYDROXY B [Concomitant]
  29. METAL AWAY B [Concomitant]
  30. D3 EMULSIFIED [Concomitant]
  31. POTASSIUM [Concomitant]
     Active Substance: POTASSIUM
  32. SHOULDER BRACE [Concomitant]
  33. T-CELL [Concomitant]
  34. AMINO ASSIST [Concomitant]
  35. ADNH ATP [Concomitant]
  36. METHYLMATE B [Concomitant]
  37. RNA MITOCHONDRIAL [Concomitant]
  38. RNA BACTERIAL [Concomitant]
  39. ADRENAL SUPPORT [Concomitant]
     Active Substance: AMERICAN GINSENG\ARSENIC TRIOXIDE\CONVALLARIA MAJALIS\CORTISONE ACETATE\CROTALUS HORRIDUS HORRIDUS VENOM\EPINEPHRINE\HOPS\IRON\OYSTER SHELL CALCIUM CARBONATE, CRUDE\PHOSPHORIC ACID\PHOSPHORUS\SELENIUM\SEPIA OFFICINALIS JUICE\STRYCHNOS NUX-VOMICA SEED\THYROID, PORCINE
  40. L-CARNATINE [Concomitant]
  41. MAGNESIUM CITRATE. [Concomitant]
     Active Substance: MAGNESIUM CITRATE
  42. ZINC LOZENGES [Concomitant]

REACTIONS (15)
  - Tendon injury [None]
  - Feeling abnormal [None]
  - Heart rate increased [None]
  - Screaming [None]
  - Panic attack [None]
  - Insomnia [None]
  - Pain [None]
  - Spinal pain [None]
  - Neuropathy peripheral [None]
  - Suicidal ideation [None]
  - Nervous system disorder [None]
  - Fatigue [None]
  - Disturbance in attention [None]
  - Psychotic disorder [None]
  - Impaired work ability [None]

NARRATIVE: CASE EVENT DATE: 20140425
